FAERS Safety Report 6898327-7 (Version None)
Quarter: 2010Q3

REPORT INFORMATION
  Report Type: 
  Country: None (occurrence: None)
  Receive Date: 20100802
  Receipt Date: 20071006
  Transmission Date: 20110219
  Serious: No
  Sender: FDA-Public Use
  Company Number: US-PFIZER INC-2007074684

PATIENT
  Sex: Male
  Weight: 84.1 kg

DRUGS (12)
  1. LYRICA [Suspect]
     Indication: HERPES ZOSTER
     Dates: start: 20070701
  2. METFORMIN HCL [Concomitant]
  3. AVANDIA [Concomitant]
     Dates: end: 20070904
  4. GLYBURIDE [Concomitant]
  5. LIPITOR [Concomitant]
  6. CELEBREX [Concomitant]
  7. ALTACE [Concomitant]
  8. ACIPHEX [Concomitant]
  9. ZETIA [Concomitant]
  10. CARDIZEM CD [Concomitant]
  11. HYTRIN [Concomitant]
  12. XANAX [Concomitant]

REACTIONS (1)
  - DRUG INEFFECTIVE [None]
